FAERS Safety Report 4783834-3 (Version None)
Quarter: 2005Q3

REPORT INFORMATION
  Report Type: 
  Country: None (occurrence: None)
  Receive Date: 20050928
  Receipt Date: 20050914
  Transmission Date: 20060218
  Serious: No
  Sender: FDA-Public Use
  Company Number: GBS050818180

PATIENT
  Age: 70 Year
  Sex: Female
  Weight: 57 kg

DRUGS (3)
  1. FORTEO [Suspect]
     Indication: OSTEOPOROSIS
     Dosage: 20 UG
     Dates: start: 20050725, end: 20050804
  2. CALCICHEW D3 [Concomitant]
  3. TYLEX [Concomitant]

REACTIONS (5)
  - DIZZINESS [None]
  - LETHARGY [None]
  - LUNG ADENOCARCINOMA [None]
  - NAUSEA [None]
  - PAIN IN EXTREMITY [None]
